FAERS Safety Report 23661865 (Version 2)
Quarter: 2024Q1

REPORT INFORMATION
  Report Type: Report from Study
  Country: US (occurrence: US)
  Receive Date: 20240322
  Receipt Date: 20240328
  Transmission Date: 20240410
  Serious: Yes (Hospitalization, Other)
  Sender: FDA-Public Use
  Company Number: US-ABBVIE-5685479

PATIENT
  Sex: Male

DRUGS (2)
  1. HUMIRA [Suspect]
     Active Substance: ADALIMUMAB
     Indication: Colitis ulcerative
     Dosage: STRENGTH: 40MG
     Route: 058
  2. HUMIRA [Suspect]
     Active Substance: ADALIMUMAB
     Dosage: STRENGTH: 40MG, LOADING DOSE
     Route: 058

REACTIONS (9)
  - Bickerstaff^s encephalitis [Not Recovered/Not Resolved]
  - Unevaluable event [Recovering/Resolving]
  - Antibody test positive [Recovering/Resolving]
  - Cellulitis [Unknown]
  - Delirium [Unknown]
  - Gastroenteritis [Unknown]
  - Diarrhoea [Unknown]
  - Ataxia [Unknown]
  - Amnesia [Unknown]

NARRATIVE: CASE EVENT DATE: 20240101
